FAERS Safety Report 5010967-9 (Version None)
Quarter: 2006Q2

REPORT INFORMATION
  Report Type: 
  Country: None (occurrence: None)
  Receive Date: 20060523
  Receipt Date: 20060520
  Transmission Date: 20061013
  Serious: Yes (Hospitalization)
  Sender: FDA-Public Use
  Company Number: 223105

PATIENT
  Age: 70 Year
  Sex: Male
  Weight: 142 kg

DRUGS (8)
  1. AVASTIN [Suspect]
     Indication: COLORECTAL CANCER METASTATIC
     Dosage: 525 MG, Q3W, INTRAVENOUS
     Route: 042
     Dates: start: 20060213
  2. CAPECITABINE (CAPECITABINE) [Suspect]
     Indication: COLORECTAL CANCER METASTATIC
     Dosage: 1500 MG, BID, ORAL
     Route: 048
     Dates: start: 20060213
  3. OXALIPLATIN (OXALIPLATIN) [Suspect]
     Indication: COLORECTAL CANCER METASTATIC
     Dosage: 245 MG, Q3W, INTRAVENOUS
     Route: 042
     Dates: start: 20060213
  4. HYDROCHLOROTHIAZIDE [Concomitant]
  5. PALONOSETRON (PALONOSETRON) [Concomitant]
  6. DEXAMETHASONE [Concomitant]
  7. PROMETHEZINE HCL [Concomitant]
  8. PEPTO-BISMOL (BISMUTH SUBSALICYLATE) [Concomitant]

REACTIONS (8)
  - ANOREXIA [None]
  - BLOOD PRESSURE DECREASED [None]
  - DEHYDRATION [None]
  - DYSGEUSIA [None]
  - DYSPEPSIA [None]
  - NAUSEA [None]
  - VOMITING [None]
  - WEIGHT DECREASED [None]
